FAERS Safety Report 24876801 (Version 2)
Quarter: 2025Q1

REPORT INFORMATION
  Report Type: Spontaneous
  Country: US (occurrence: US)
  Receive Date: 20250123
  Receipt Date: 20250317
  Transmission Date: 20250409
  Serious: Yes (Hospitalization, Disabling, Other)
  Sender: TEVA
  Company Number: US-TEVA-VS-3288292

PATIENT
  Age: 62 Year
  Sex: Female

DRUGS (13)
  1. LISINOPRIL [Suspect]
     Active Substance: LISINOPRIL
     Indication: Hypertension
     Route: 048
     Dates: start: 201407, end: 201407
  2. MOXIFLOXACIN [Concomitant]
     Active Substance: MOXIFLOXACIN
     Indication: Sinusitis
     Route: 048
  3. MOXIFLOXACIN [Concomitant]
     Active Substance: MOXIFLOXACIN
     Indication: Sinusitis
     Dates: start: 20140731
  4. TASIGNA [Concomitant]
     Active Substance: NILOTINIB
     Indication: Product used for unknown indication
     Dosage: EVERY 12 HOURS BY MOUTH
     Route: 048
  5. TASIGNA [Concomitant]
     Active Substance: NILOTINIB
     Indication: Product used for unknown indication
     Dates: start: 20140731
  6. PERIDEX [Concomitant]
     Active Substance: CHLORHEXIDINE GLUCONATE
     Dosage: PERIDEX 0.12% MUCOUS MEMBRANE LIQUID
     Route: 061
     Dates: start: 202407
  7. PERIDEX [Concomitant]
     Active Substance: CHLORHEXIDINE GLUCONATE
     Dates: start: 20140731
  8. NEXIUM [Concomitant]
     Active Substance: ESOMEPRAZOLE MAGNESIUM
     Indication: Gastrooesophageal reflux disease
  9. NORVASC [Concomitant]
     Active Substance: AMLODIPINE BESYLATE
     Indication: Hypertension
     Dosage: 10 MG ONCE A DAY BY MOUTH
     Route: 048
  10. ESTRACE [Concomitant]
     Active Substance: ESTRADIOL
     Dosage: 1 MG ONCE A DAY BY MOUTH
     Route: 048
  11. BENZOYL PEROXIDE [Concomitant]
     Active Substance: BENZOYL PEROXIDE
     Route: 061
  12. HYDROQUINONE [Concomitant]
     Active Substance: HYDROQUINONE
     Dosage: 4% TOPICAL CREAM BID PRN
     Route: 061
  13. TRIAMCINOLONE [Concomitant]
     Active Substance: TRIAMCINOLONE
     Route: 061

REACTIONS (36)
  - Pharyngeal swelling [Recovered/Resolved]
  - Tongue oedema [Recovered/Resolved]
  - Blood pressure abnormal [Recovered/Resolved]
  - Anxiety [Recovered/Resolved]
  - Anaphylactic shock [Recovered/Resolved]
  - Disability [Recovered/Resolved]
  - Dyspnoea [Recovered/Resolved]
  - Coma [Recovered/Resolved]
  - Loss of personal independence in daily activities [Recovered/Resolved]
  - Dysphagia [Recovered/Resolved]
  - Acute respiratory failure [Recovered/Resolved]
  - Memory impairment [Recovered/Resolved]
  - Acute sinusitis [Recovered/Resolved]
  - Angioedema [Recovered/Resolved]
  - Swelling face [Recovered/Resolved]
  - Speech disorder [Recovered/Resolved]
  - Mental status changes [Recovered/Resolved]
  - Dysphonia [Recovered/Resolved]
  - Cardiomegaly [Recovered/Resolved]
  - Atelectasis [Recovered/Resolved]
  - Mouth swelling [Recovered/Resolved]
  - Laryngeal oedema [Recovered/Resolved]
  - Pyrexia [Recovered/Resolved]
  - Drooling [Recovered/Resolved]
  - Blood sodium decreased [Recovered/Resolved]
  - Nasal inflammation [Recovered/Resolved]
  - Nasal mucosal disorder [Recovered/Resolved]
  - Swelling [Recovered/Resolved]
  - White blood cell count decreased [Recovered/Resolved]
  - Rhinitis [Recovered/Resolved]
  - Localised oedema [Recovered/Resolved]
  - Blood creatinine decreased [Recovered/Resolved]
  - Oropharyngeal pain [Recovered/Resolved]
  - White blood cell count increased [Recovered/Resolved]
  - Skin odour abnormal [Recovered/Resolved]
  - Protrusion tongue [Recovered/Resolved]

NARRATIVE: CASE EVENT DATE: 20140701
